FAERS Safety Report 5046220-7 (Version None)
Quarter: 2006Q2

REPORT INFORMATION
  Report Type: 
  Country: None (occurrence: None)
  Receive Date: 20060629
  Receipt Date: 20060615
  Transmission Date: 20061013
  Serious: Yes (Other)
  Sender: FDA-Public Use
  Company Number: 2006075896

PATIENT
  Age: 54 Year
  Sex: Male

DRUGS (17)
  1. VIAGRA [Suspect]
     Indication: ILL-DEFINED DISORDER
     Dates: start: 20010215
  2. FIORENAL WITH CODEINE (ACETYLSALIYCILC ACID, BUTALBITAL CAFFEINE, CODE [Concomitant]
  3. ATENOLOL [Concomitant]
  4. DONNATAL (ATROPINE SULFATE, HYOXCINE HYDROBROMIDE, HYOSCYAMINE SULFATE [Concomitant]
  5. BUTALBITAL COMPOUND (BUTALBITAL) [Concomitant]
  6. PENICILLIN VK (PHENOXYMETHYLPHENICILLIN POTASSIUM) [Concomitant]
  7. HYDROCODONE W/ACETAMINOPHEN (HYDROCODONE BITARTRATE) [Concomitant]
  8. GEMFIBROZIL [Concomitant]
  9. LEXAPRO [Concomitant]
  10. LIPITOR [Concomitant]
  11. AMITRIPTYLINE (AMITRIPTYLINE) [Concomitant]
  12. NAPROXEN [Concomitant]
  13. MOBIC [Concomitant]
  14. PROMETHAZINE [Concomitant]
  15. LONOX (ATROPINE SULFATE, DIPHENOXYLATE HYDROCHLORIDE) [Concomitant]
  16. METHYLPREDNISOLONE [Concomitant]
  17. DICLOFENAC SODIUM [Concomitant]

REACTIONS (1)
  - OPTIC ISCHAEMIC NEUROPATHY [None]
